FAERS Safety Report 8612283-2 (Version None)
Quarter: 2012Q3

REPORT INFORMATION
  Report Type: 
  Country: None (occurrence: None)
  Receive Date: 20120822
  Receipt Date: 20120816
  Transmission Date: 20120928
  Serious: Yes (Hospitalization, Other)
  Sender: FDA-Public Use
  Company Number: AU-PFIZER INC-2012199849

PATIENT
  Age: 32 Year
  Sex: Male

DRUGS (2)
  1. ALCOHOL [Interacting]
     Dosage: UNK
  2. XANAX [Suspect]
     Indication: ANXIETY
     Dosage: UNK

REACTIONS (7)
  - ALCOHOL INTERACTION [None]
  - AMNESIA [None]
  - CRIME [None]
  - FEELING ABNORMAL [None]
  - MENTAL DISORDER [None]
  - HEAD INJURY [None]
  - ABNORMAL BEHAVIOUR [None]
